FAERS Safety Report 11456690 (Version 1)
Quarter: 2015Q3

REPORT INFORMATION
  Report Type: Spontaneous
  Country: US (occurrence: US)
  Receive Date: 20150903
  Receipt Date: 20150903
  Transmission Date: 20151125
  Serious: Yes (Other)
  Sender: FDA-Public Use
  Company Number: US-TAKEDA-2014TUS004885

PATIENT

DRUGS (5)
  1. ACTOS [Suspect]
     Active Substance: PIOGLITAZONE HYDROCHLORIDE
     Indication: TYPE 2 DIABETES MELLITUS
     Dosage: 45 MG, UNK
     Route: 048
     Dates: start: 200002, end: 201012
  2. REZULIN [Concomitant]
     Active Substance: TROGLITAZONE
     Dosage: UNK
     Dates: end: 1995
  3. DIABETA                            /00145301/ [Concomitant]
     Dosage: UNK
     Dates: start: 1986
  4. LANTUS [Concomitant]
     Active Substance: INSULIN GLARGINE
  5. AMARYL [Concomitant]
     Active Substance: GLIMEPIRIDE
     Dosage: UNK
     Dates: start: 1986

REACTIONS (1)
  - Bladder cancer [Unknown]

NARRATIVE: CASE EVENT DATE: 20080221
